FAERS Safety Report 7232026-7 (Version None)
Quarter: 2011Q1

REPORT INFORMATION
  Report Type: 
  Country: None (occurrence: None)
  Receive Date: 20110118
  Receipt Date: 20110106
  Transmission Date: 20110831
  Serious: Yes (Death)
  Sender: FDA-Public Use
  Company Number: US-JNJCH-2011000945

PATIENT
  Age: 76 Year
  Sex: Female

DRUGS (6)
  1. ALPRAZOLAM [Suspect]
     Indication: PRODUCT USED FOR UNKNOWN INDICATION
     Dosage: TEXT:UNKNOWN
     Route: 048
  2. DRUG, UNSPECIFIED [Suspect]
     Indication: PRODUCT USED FOR UNKNOWN INDICATION
     Dosage: TEXT:UNKNOWN
     Route: 048
  3. SSRI [Suspect]
     Indication: PRODUCT USED FOR UNKNOWN INDICATION
     Dosage: TEXT:UNKNOWN
     Route: 048
  4. DIPHENHYDRAMINE [Suspect]
     Indication: PRODUCT USED FOR UNKNOWN INDICATION
     Dosage: TEXT:UNKNOWN
     Route: 048
  5. OPIOIDS [Suspect]
     Indication: PRODUCT USED FOR UNKNOWN INDICATION
     Dosage: TEXT:UNKNOWN
     Route: 048
  6. AMITRIPTYLINE [Suspect]
     Indication: PRODUCT USED FOR UNKNOWN INDICATION
     Dosage: TEXT:UNKNOWN
     Route: 048

REACTIONS (4)
  - RESPIRATORY ARREST [None]
  - TOXICITY TO VARIOUS AGENTS [None]
  - CARDIAC ARREST [None]
  - COMPLETED SUICIDE [None]
